FAERS Safety Report 5621861-4 (Version None)
Quarter: 2008Q1

REPORT INFORMATION
  Report Type: 
  Country: None (occurrence: None)
  Receive Date: 20080211
  Receipt Date: 20071119
  Transmission Date: 20080703
  Serious: No
  Sender: FDA-Public Use
  Company Number: US-BRISTOL-MYERS SQUIBB COMPANY-13987466

PATIENT
  Sex: Female

DRUGS (1)
  1. IXEMPRA [Suspect]
     Indication: BREAST CANCER
     Dosage: 70MG IN 250CC OF LACTATED RINGERS SOLUTION; DOSE WAS REDUCED TO 45-50MG AND FINALLY STOPPED.
     Route: 042
     Dates: start: 20071119

REACTIONS (2)
  - EXTRAVASATION [None]
  - HOT FLUSH [None]
